FAERS Safety Report 6732889-5 (Version None)
Quarter: 2010Q2

REPORT INFORMATION
  Report Type: 
  Country: None (occurrence: None)
  Receive Date: 20100519
  Receipt Date: 20100510
  Transmission Date: 20101027
  Serious: Yes (Death, Other)
  Sender: FDA-Public Use
  Company Number: US-WATSON-2010-05294

PATIENT
  Sex: Male

DRUGS (2)
  1. FENTANYL-50 [Suspect]
     Indication: INTENTIONAL DRUG MISUSE
     Dosage: UNK
     Route: 065
  2. FENTANYL-50 [Suspect]
     Dosage: UNK
     Route: 065

REACTIONS (4)
  - DEATH [None]
  - DRUG DIVERSION [None]
  - LUNG DISORDER [None]
  - OVERDOSE [None]
